FAERS Safety Report 4451288-2 (Version None)
Quarter: 2004Q3

REPORT INFORMATION
  Report Type: 
  Country: None (occurrence: None)
  Receive Date: 20040916
  Receipt Date: 20040913
  Transmission Date: 20050211
  Serious: Yes (Death, Other)
  Sender: FDA-Public Use
  Company Number: PHBS2004US12090

PATIENT
  Age: 63 Year
  Sex: Male

DRUGS (3)
  1. CYCLOSPORINE [Suspect]
     Indication: HEART TRANSPLANT
     Dosage: 225 MG, BID
     Route: 065
  2. AZATHIOPRINE [Concomitant]
     Dosage: 175 MG, QD
  3. PREDNISONE [Concomitant]
     Dosage: 5 MG, BID

REACTIONS (5)
  - BRONCHIOLOALVEOLAR CARCINOMA [None]
  - FUNGAL SKIN INFECTION [None]
  - NODULE [None]
  - SUBCUTANEOUS ABSCESS [None]
  - THORACOTOMY [None]
